FAERS Safety Report 6136714-5 (Version None)
Quarter: 2009Q1

REPORT INFORMATION
  Report Type: 
  Country: None (occurrence: None)
  Receive Date: 20090330
  Receipt Date: 20090319
  Transmission Date: 20090719
  Serious: Yes (Hospitalization, Other)
  Sender: FDA-Public Use
  Company Number: PHHO2009JP01876

PATIENT
  Sex: Male
  Weight: 69 kg

DRUGS (26)
  1. RAD 666 RAD+TAB+PTR [Suspect]
     Indication: RENAL TRANSPLANT
     Dosage: 1.0 MG, QD
     Route: 048
     Dates: start: 20081218, end: 20090204
  2. RAD 666 RAD+TAB+PTR [Suspect]
     Dosage: 1.0 MAG DAILY
     Route: 048
     Dates: start: 20090302, end: 20090312
  3. NEORAL [Suspect]
     Indication: RENAL TRANSPLANT
     Dosage: 100 MG, BID
     Route: 048
     Dates: start: 20090121, end: 20090202
  4. NEORAL [Suspect]
     Dosage: 100 MG DAILY
     Route: 048
     Dates: start: 20090202, end: 20090207
  5. NEORAL [Suspect]
     Dosage: 60 MG DAILY
     Route: 048
     Dates: start: 20090202, end: 20090207
  6. NEORAL [Suspect]
     Dosage: 80 MG DAILY
     Route: 048
     Dates: start: 20090207, end: 20090212
  7. NEORAL [Suspect]
     Dosage: 100 MG DAILY
     Route: 048
     Dates: start: 20090212, end: 20090216
  8. NEORAL [Suspect]
     Dosage: 120 MG DAILY
     Route: 048
     Dates: start: 20090216, end: 20090218
  9. NEORAL [Suspect]
     Dosage: 160 MG DAILY
     Route: 048
     Dates: start: 20090218, end: 20090219
  10. NEORAL [Suspect]
     Dosage: 200 MG DAILY
     Route: 048
     Dates: start: 20090219, end: 20090220
  11. NEORAL [Suspect]
     Dosage: 300 MG DAILY
     Route: 048
     Dates: start: 20090223, end: 20090228
  12. NEORAL [Suspect]
     Dosage: 240 MG DAILY
     Route: 048
     Dates: start: 20090228, end: 20090306
  13. NEORAL [Suspect]
     Dosage: 220 MG DAILY
     Route: 048
     Dates: start: 20090307
  14. SIMULECT [Suspect]
     Indication: RENAL TRANSPLANT
     Dosage: 20 MG, ONCE/SINGLE
     Route: 042
     Dates: start: 20081217, end: 20081217
  15. SIMULECT [Suspect]
     Dosage: 20 MG, ONCE/SINGLE
     Route: 042
     Dates: start: 20081221, end: 20081221
  16. SANDIMMUNE [Suspect]
     Dosage: 60 MG DAILY
     Dates: start: 20090220, end: 20090223
  17. BAKTAR [Suspect]
  18. MEDROL [Suspect]
     Indication: RENAL TRANSPLANT
     Dosage: 6 MG, QD
     Route: 048
     Dates: start: 20090116, end: 20090206
  19. MEDROL [Suspect]
     Dosage: 40 MG DAILY
     Route: 048
     Dates: start: 20090210, end: 20090211
  20. MEDROL [Suspect]
     Dosage: 20 MG DAILY
     Route: 048
     Dates: start: 20090212, end: 20090214
  21. MEDROL [Suspect]
     Dosage: 10 MG DAILY
     Route: 048
     Dates: start: 20090215, end: 20090222
  22. MEDROL [Suspect]
     Dosage: 20 MG DAILY
     Route: 048
     Dates: start: 20090223, end: 20090225
  23. MEDROL [Suspect]
     Dosage: 16 MG DAILY
     Route: 048
     Dates: start: 20090226
  24. PARIET [Concomitant]
  25. LIPITOR [Concomitant]
  26. ISODINE [Concomitant]

REACTIONS (16)
  - BLOOD BETA-D-GLUCAN INCREASED [None]
  - BLOOD CREATININE INCREASED [None]
  - C-REACTIVE PROTEIN INCREASED [None]
  - DIARRHOEA [None]
  - DRUG HYPERSENSITIVITY [None]
  - FUNGUS SEROLOGY TEST [None]
  - HAEMATURIA [None]
  - LEUKOPENIA [None]
  - NEPHROPATHY TOXIC [None]
  - PLEURISY [None]
  - PNEUMOCYSTIS JIROVECI PNEUMONIA [None]
  - PROTEIN URINE PRESENT [None]
  - PYREXIA [None]
  - RASH [None]
  - THROMBOCYTOPENIA [None]
  - URINARY TRACT INFECTION [None]
